FAERS Safety Report 17179011 (Version 1)
Quarter: 2019Q4

REPORT INFORMATION
  Report Type: Spontaneous
  Country: US (occurrence: US)
  Receive Date: 20191219
  Receipt Date: 20191219
  Transmission Date: 20200122
  Serious: No
  Sender: FDA-Public Use
  Company Number: US-NANG KUANG PHARMACEUTICAL CO., LTD.-2078038

PATIENT

DRUGS (1)
  1. LINEZOLID INJECTION, 200 MG/100 ML (2 MG/ML) AND 600 MG/300 ML (2 MG/M [Suspect]
     Active Substance: LINEZOLID
     Indication: INFECTION
     Route: 041
     Dates: start: 201910

REACTIONS (1)
  - No adverse event [None]

NARRATIVE: CASE EVENT DATE: 20191030
